FAERS Safety Report 20851513 (Version 2)
Quarter: 2022Q2

REPORT INFORMATION
  Report Type: Spontaneous
  Country: US (occurrence: US)
  Receive Date: 20220519
  Receipt Date: 20220614
  Transmission Date: 20220721
  Serious: Yes (Other)
  Sender: FDA-Public Use
  Company Number: US-BIOGEN-2022BI01124160

PATIENT
  Sex: Female

DRUGS (1)
  1. TYSABRI [Suspect]
     Active Substance: NATALIZUMAB
     Indication: Multiple sclerosis
     Route: 065
     Dates: start: 20071102

REACTIONS (6)
  - Deafness [Unknown]
  - Amnesia [Unknown]
  - Cognitive disorder [Unknown]
  - Communication disorder [Unknown]
  - Reading disorder [Unknown]
  - Agraphia [Unknown]
